FAERS Safety Report 4589558-X (Version None)
Quarter: 2005Q1

REPORT INFORMATION
  Report Type: 
  Country: None (occurrence: None)
  Receive Date: 20050216
  Receipt Date: 20050202
  Transmission Date: 20050727
  Serious: Yes (Life-Threatening)
  Sender: FDA-Public Use
  Company Number: 2004206077DE

PATIENT
  Age: 65 Year
  Sex: Male
  Weight: 94 kg

DRUGS (11)
  1. BEXTRA [Suspect]
     Indication: POLYARTHRITIS
     Dosage: 10 MG (10 MG, 1 IN 1 D), ORAL
     Route: 048
     Dates: start: 20031031, end: 20040115
  2. BEXTRA [Suspect]
     Indication: PSORIASIS
     Dosage: 10 MG (10 MG, 1 IN 1 D), ORAL
     Route: 048
     Dates: start: 20031031, end: 20040115
  3. ASPIRIN [Concomitant]
  4. ISOSORBIDE DINITRATE [Concomitant]
  5. MOLSIDOMINE (MOLSIDOMINE) [Concomitant]
  6. LISINOPRIL [Concomitant]
  7. BISOPROLOL FUMARATE [Concomitant]
  8. LEVOTHYROXINE SODIUM [Concomitant]
  9. INSUMAN (INSULIN HUMAN INJECTION, ISOPHANE, INSULIN ZINC PROTAMINE INJ [Concomitant]
  10. GLIMEPIRIDE [Concomitant]
  11. METFORMIN HCL [Concomitant]

REACTIONS (9)
  - CARDIAC FAILURE [None]
  - CARDIOMEGALY [None]
  - CONDITION AGGRAVATED [None]
  - DYSPNOEA [None]
  - EMPHYSEMA [None]
  - FATIGUE [None]
  - OBSTRUCTIVE AIRWAYS DISORDER [None]
  - PROCEDURAL COMPLICATION [None]
  - PULMONARY CONGESTION [None]
